FAERS Safety Report 6584694-0 (Version None)
Quarter: 2010Q1

REPORT INFORMATION
  Report Type: 
  Country: None (occurrence: None)
  Receive Date: 20100217
  Receipt Date: 20100204
  Transmission Date: 20100710
  Serious: Yes (Hospitalization)
  Sender: FDA-Public Use
  Company Number: PHEH2010US02206

PATIENT
  Sex: Female

DRUGS (9)
  1. EXJADE [Suspect]
     Indication: MYELODYSPLASTIC SYNDROME
     Dosage: 1000 MG, QD
     Route: 048
     Dates: start: 20091230
  2. VIDAZA [Concomitant]
     Dosage: UNK, UNK
  3. BACTRIM [Concomitant]
     Dosage: UNK, UNK
  4. POTASSIUM [Concomitant]
     Dosage: UNK, UNK
  5. AMBIEN [Concomitant]
     Dosage: UNK, UNK
  6. ATIVAN [Concomitant]
     Dosage: UNK, UNK
  7. ACYCLOVIR [Concomitant]
     Dosage: UNK, UNK
  8. REQUIP [Concomitant]
     Dosage: UNK, UNK
  9. OXYCONTIN [Concomitant]
     Dosage: UNK, UNK

REACTIONS (2)
  - AMNESIA [None]
  - BRAIN CANCER METASTATIC [None]
